FAERS Safety Report 11950456 (Version 1)
Quarter: 2016Q1

REPORT INFORMATION
  Report Type: Spontaneous
  Country: US (occurrence: US)
  Receive Date: 20160126
  Receipt Date: 20160126
  Transmission Date: 20160526
  Serious: No
  Sender: FDA-Public Use
  Company Number: US-BIOGEN-2016BI00174590

PATIENT
  Age: 54 Year
  Sex: Female

DRUGS (1)
  1. TECFIDERA [Suspect]
     Active Substance: DIMETHYL FUMARATE
     Indication: MULTIPLE SCLEROSIS
     Dates: start: 20151105

REACTIONS (5)
  - Flushing [Unknown]
  - Abdominal discomfort [Unknown]
  - Pruritus [Unknown]
  - Cold sweat [Unknown]
  - Chest pain [Unknown]

NARRATIVE: CASE EVENT DATE: 20151225
